FAERS Safety Report 9879739 (Version 2)
Quarter: 2014Q1

REPORT INFORMATION
  Report Type: Spontaneous
  Country: US (occurrence: US)
  Receive Date: 20140206
  Receipt Date: 20140206
  Transmission Date: 20141002
  Serious: No
  Sender: FDA-Public Use
  Company Number: US-GILEAD-2013-0082217

PATIENT
  Age: 76 Year
  Sex: Female

DRUGS (24)
  1. LETAIRIS [Suspect]
     Indication: PULMONARY ARTERIAL HYPERTENSION
     Dosage: 10 MG, QD
     Route: 048
     Dates: start: 20120821, end: 20130815
  2. TOPROL [Concomitant]
     Dosage: UNK
     Dates: start: 20130109
  3. TOPAMAX [Concomitant]
     Dosage: UNK
     Dates: start: 20130627, end: 20130727
  4. TOPAMAX [Concomitant]
     Dosage: UNK
  5. DEMADEX                            /01036501/ [Concomitant]
     Dosage: UNK
     Dates: start: 20130619, end: 20130719
  6. ELAVIL                             /00002202/ [Concomitant]
     Dosage: UNK
     Dates: start: 20130711, end: 20130828
  7. CALCIUM WITH VITAMIN D3 [Concomitant]
     Dosage: UNK
     Dates: end: 20130815
  8. OMNARIS [Concomitant]
     Dosage: UNK
     Dates: start: 20130109, end: 20130815
  9. CELEXA                             /00582602/ [Concomitant]
     Dosage: UNK
     Dates: start: 20130626, end: 20130815
  10. IMDUR [Concomitant]
     Dosage: UNK
     Dates: start: 20130723, end: 20130815
  11. SYNTHROID [Concomitant]
     Dosage: UNK
     Dates: start: 20130718, end: 20130815
  12. CLARITIN                           /00917501/ [Concomitant]
     Dosage: UNK
     Dates: end: 20130815
  13. SLOW-MAG [Concomitant]
     Dosage: UNK
     Dates: start: 20121112, end: 20130815
  14. ANTIVERT                           /00072802/ [Concomitant]
     Dosage: UNK
     Dates: start: 20130718, end: 20130815
  15. BACTROBAN                          /00753901/ [Concomitant]
     Dosage: UNK
     Dates: end: 20130815
  16. NYSTATIN [Concomitant]
     Dosage: UNK
     Dates: start: 20130718, end: 20130815
  17. PRILOSEC                           /00661201/ [Concomitant]
     Dosage: UNK
     Dates: start: 20130109, end: 20130815
  18. K-DUR [Concomitant]
     Dosage: UNK
     Dates: start: 20130613, end: 20130815
  19. THERAGRAN-M                        /07499601/ [Concomitant]
     Dosage: UNK
     Dates: end: 20130815
  20. ULTRAM                             /00599202/ [Concomitant]
     Dosage: UNK
     Dates: end: 20130826
  21. KENALOG                            /00031902/ [Concomitant]
     Dosage: UNK
     Dates: end: 20130815
  22. CYANOCOBALAMIN [Concomitant]
     Dosage: UNK
     Dates: start: 20110916, end: 20130815
  23. AMBIEN [Concomitant]
     Dosage: UNK
     Dates: start: 20130410, end: 20130815
  24. AMBIEN [Concomitant]
     Dosage: UNK
     Dates: end: 20130826

REACTIONS (2)
  - Unevaluable event [Not Recovered/Not Resolved]
  - Swelling [Not Recovered/Not Resolved]
